FAERS Safety Report 14022532 (Version 3)
Quarter: 2020Q3

REPORT INFORMATION
  Report Type: Report from Study
  Country: KR (occurrence: KR)
  Receive Date: 20170929
  Receipt Date: 20171218
  Transmission Date: 20201105
  Serious: Yes (Hospitalization)
  Sender: FDA-Public Use
  Company Number: KR-PFIZER INC-2017398261

PATIENT
  Age: 76 Year
  Sex: Female

DRUGS (20)
  1. CARBOPLATIN. [Suspect]
     Active Substance: CARBOPLATIN
     Indication: NON-SMALL CELL LUNG CANCER
     Dosage: 5 AUC, EVERY 3 WEEKS
     Route: 042
     Dates: start: 20170724, end: 20170724
  2. MEDI4736 [Suspect]
     Active Substance: DURVALUMAB
     Dosage: 1500 MG, EVERY 3 WEEKS
     Route: 042
     Dates: start: 20170816, end: 20170816
  3. TREMELIMUMAB. [Suspect]
     Active Substance: TREMELIMUMAB
     Dosage: 75 MG, EVERY 3 WEEKS
     Route: 042
     Dates: start: 20170816, end: 20170816
  4. PEMETREXED. [Suspect]
     Active Substance: PEMETREXED
     Indication: NON-SMALL CELL LUNG CANCER
     Dosage: 500 MG/M2, EVERY 3 WEEKS
     Route: 042
     Dates: start: 20170724, end: 20170724
  5. MEDI4736 [Suspect]
     Active Substance: DURVALUMAB
     Indication: NON-SMALL CELL LUNG CANCER
     Dosage: 1500 MG, EVERY 3 WEEKS
     Route: 042
     Dates: start: 20170724, end: 20170724
  6. URSA [Concomitant]
     Active Substance: URSODIOL
     Indication: ASPARTATE AMINOTRANSFERASE INCREASED
     Dosage: 100 MG, 3X/DAY
     Route: 048
     Dates: start: 20170816
  7. CRAVIT [Concomitant]
     Active Substance: LEVOFLOXACIN
     Indication: INFECTION PROPHYLAXIS
     Dosage: 500 MG, 1X/DAY
     Route: 048
     Dates: start: 20170823
  8. DURICEF [Concomitant]
     Active Substance: CEFADROXIL
     Indication: INFECTION PROPHYLAXIS
     Dosage: 500 MG, 2X/DAY
     Route: 048
     Dates: start: 20170823
  9. PEMETREXED. [Suspect]
     Active Substance: PEMETREXED
     Dosage: 500 MG/M2, EVERY 3 WEEKS
     Route: 042
     Dates: start: 20170816, end: 20170816
  10. MACPERAN [Concomitant]
     Active Substance: METOCLOPRAMIDE HYDROCHLORIDE
     Indication: PROPHYLAXIS OF NAUSEA AND VOMITING
     Dosage: 5.0MG AS REQUIRED
     Route: 048
     Dates: start: 20170724
  11. TYLENOL ER [Concomitant]
     Active Substance: ACETAMINOPHEN
     Indication: PROPHYLAXIS
     Dosage: 650.0MG AS REQUIRED
     Route: 048
     Dates: start: 20170817
  12. CARBOPLATIN. [Suspect]
     Active Substance: CARBOPLATIN
     Dosage: 5 AUC, EVERY 3 WEEKS
     Route: 042
     Dates: start: 20170816, end: 20170816
  13. ACTINAMIDE [Concomitant]
     Indication: ANAEMIA PROPHYLAXIS
     Dosage: 1 MG, EVERY 3 WEEKS
     Route: 030
     Dates: start: 20170724
  14. COFREL [Concomitant]
     Indication: COUGH
     Dosage: 20 MG, 4X/DAY
     Route: 048
     Dates: start: 20170823, end: 20170905
  15. CODEINE [Concomitant]
     Active Substance: CODEINE
     Indication: COUGH
     Dosage: 20 MG, 3X/DAY
     Route: 048
     Dates: start: 20170724
  16. MEGACE [Concomitant]
     Active Substance: MEGESTROL ACETATE
     Indication: PROPHYLAXIS
     Dosage: 10.0ML AS REQUIRED
     Route: 048
     Dates: start: 20170724
  17. COUGH SYRUP /06155801/ [Concomitant]
     Indication: COUGH
     Dosage: 20 ML, 4X/DAY
     Route: 048
     Dates: start: 20170823, end: 20170905
  18. TREMELIMUMAB. [Suspect]
     Active Substance: TREMELIMUMAB
     Indication: NON-SMALL CELL LUNG CANCER
     Dosage: 75 MG, EVERY 3 WEEKS
     Route: 042
     Dates: start: 20170724, end: 20170724
  19. FOLIC ACID. [Concomitant]
     Active Substance: FOLIC ACID
     Indication: ANAEMIA PROPHYLAXIS
     Dosage: 1 MG, 1X/DAY
     Route: 048
  20. ALOXI [Concomitant]
     Active Substance: PALONOSETRON HYDROCHLORIDE
     Indication: PROPHYLAXIS
     Dosage: 0.3 MG, EVERY 3 WEEKS
     Route: 042
     Dates: start: 20170724

REACTIONS (1)
  - Pneumonitis [Recovered/Resolved]

NARRATIVE: CASE EVENT DATE: 20170906
